FAERS Safety Report 6375744-5 (Version None)
Quarter: 2009Q3

REPORT INFORMATION
  Report Type: 
  Country: None (occurrence: None)
  Receive Date: 20090921
  Receipt Date: 20090910
  Transmission Date: 20100115
  Serious: Yes (Hospitalization)
  Sender: FDA-Public Use
  Company Number: 2008AL011229

PATIENT
  Age: 78 Year
  Sex: Female

DRUGS (33)
  1. DIGOXIN [Suspect]
     Dosage: 0.125MG, DAILY, PO
     Route: 048
     Dates: start: 20080325, end: 20080430
  2. WARFARIN SODIUM [Concomitant]
  3. ALDACTONE [Concomitant]
  4. ZESTRIL [Concomitant]
  5. PREMARIN [Concomitant]
  6. OMACOR [Concomitant]
  7. ZYLOPRIM [Concomitant]
  8. LOVENOX [Concomitant]
  9. PROTONIX [Concomitant]
  10. XANAX [Concomitant]
  11. ALLOPURINOL [Concomitant]
  12. MAGNESIUM [Concomitant]
  13. PRAVASTATIN [Concomitant]
  14. SPIRONOLACTONE [Concomitant]
  15. LISINOPRIL [Concomitant]
  16. NITROGLYCERIN [Concomitant]
  17. PANTOPRAZOLE SODIUM [Concomitant]
  18. DURAHIST [Concomitant]
  19. LORAZEPAM [Concomitant]
  20. AZITHROMYCIN [Concomitant]
  21. ACYCLOVIR [Concomitant]
  22. CEPHALEXIN [Concomitant]
  23. PHENAZOPYRIDINE HCL TAB [Concomitant]
  24. NITROFURANTOIN [Concomitant]
  25. AMOXICILLIN AND CLAVULANATE POTASSIUM [Concomitant]
  26. PROCHLORPERAZINE [Concomitant]
  27. LOVAZA [Concomitant]
  28. PLAVIX [Concomitant]
  29. LIPITOR [Concomitant]
  30. TERAZOSIN HCL [Concomitant]
  31. ATENOLOL [Concomitant]
  32. CLONIDINE [Concomitant]
  33. D-HIST D [Concomitant]

REACTIONS (12)
  - ANHEDONIA [None]
  - ANXIETY [None]
  - AORTIC STENOSIS [None]
  - ATRIAL FIBRILLATION [None]
  - CONDITION AGGRAVATED [None]
  - DRUG TOXICITY [None]
  - DYSPNOEA [None]
  - ECONOMIC PROBLEM [None]
  - INJURY [None]
  - OVERDOSE [None]
  - PAIN [None]
  - PALPITATIONS [None]
